FAERS Safety Report 21190496 (Version 1)
Quarter: 2022Q3

REPORT INFORMATION
  Report Type: Spontaneous
  Country: IT (occurrence: IT)
  Receive Date: 20220809
  Receipt Date: 20220809
  Transmission Date: 20221026
  Serious: Yes (Death, Other)
  Sender: FDA-Public Use
  Company Number: IT-AMGEN-ITASP2022133321

PATIENT

DRUGS (8)
  1. PANITUMUMAB [Suspect]
     Active Substance: PANITUMUMAB
     Indication: Rectal adenocarcinoma
     Dosage: 6 MILLIGRAM/KILOGRAM, Q2WK (FIVE CYCLES)
     Route: 065
  2. CAPECITABINE [Concomitant]
     Active Substance: CAPECITABINE
     Indication: Rectal adenocarcinoma
     Dosage: 825 MG/MQ, BID FOR 6 WEEKS
  3. OXALIPLATIN [Concomitant]
     Active Substance: OXALIPLATIN
     Indication: Rectal adenocarcinoma
     Dosage: UNK, 85 MG/MQ OVER 2 H DAY 1
  4. FLUOROURACIL [Concomitant]
     Active Substance: FLUOROURACIL
     Indication: Rectal adenocarcinoma
     Dosage: UNK, 2400 MG/MQ OVER 48 HR
  5. LEUCOVORIN CALCIUM [Concomitant]
     Active Substance: LEUCOVORIN CALCIUM
     Indication: Rectal adenocarcinoma
     Dosage: UNK, 200 MG/MQ OVER 2 HR DAY 1
  6. IRINOTECAN [Concomitant]
     Active Substance: IRINOTECAN
     Indication: Rectal adenocarcinoma
     Dosage: UNK (180 MG/MQ OVER 90 MIN DAY 1)
     Route: 065
  7. TIPIRACIL HYDROCHLORIDE\TRIFLURIDINE [Concomitant]
     Active Substance: TIPIRACIL HYDROCHLORIDE\TRIFLURIDINE
     Indication: Rectal adenocarcinoma
     Dosage: UNK, CYCLICAL (700 MG/MQ Q 28)
  8. BEVACIZUMAB [Concomitant]
     Active Substance: BEVACIZUMAB
     Indication: Rectal adenocarcinoma
     Dosage: 5 MILLIGRAM/KILOGRAM, Q2WK

REACTIONS (7)
  - Death [Fatal]
  - Intestinal adenocarcinoma [Unknown]
  - Metastases to liver [Unknown]
  - Metastases to lung [Unknown]
  - Rectal adenocarcinoma [Unknown]
  - N-ras gene mutation [Unknown]
  - Acidosis [Unknown]
